FAERS Safety Report 5406497-2 (Version None)
Quarter: 2007Q3

REPORT INFORMATION
  Report Type: 
  Country: None (occurrence: None)
  Receive Date: 20070806
  Receipt Date: 20070727
  Transmission Date: 20080115
  Serious: Yes (Other)
  Sender: FDA-Public Use
  Company Number: FR-PFIZER INC-2007042030

PATIENT
  Sex: Female

DRUGS (5)
  1. LYRICA [Suspect]
     Indication: PARTIAL SEIZURES
  2. TEGRETOL [Interacting]
     Indication: PARTIAL SEIZURES
     Dosage: DAILY DOSE:1600MG
     Route: 048
  3. TEGRETOL [Interacting]
     Indication: EPILEPSY
  4. EPITOMAX [Concomitant]
     Indication: EPILEPSY
     Route: 048
  5. PAROXETINE HCL [Concomitant]
     Indication: DEPRESSION
     Route: 048

REACTIONS (4)
  - DIPLOPIA [None]
  - DRUG INTERACTION [None]
  - EPILEPSY [None]
  - NERVOUS SYSTEM DISORDER [None]
